FAERS Safety Report 7652980-9 (Version None)
Quarter: 2011Q3

REPORT INFORMATION
  Report Type: 
  Country: None (occurrence: None)
  Receive Date: 20110803
  Receipt Date: 20110801
  Transmission Date: 20111222
  Serious: Yes (Other)
  Sender: FDA-Public Use
  Company Number: GB-PFIZER INC-2011175595

PATIENT
  Age: 28 Year
  Sex: Female

DRUGS (6)
  1. VENTOLIN HFA [Concomitant]
  2. VARENICLINE TARTRATE [Suspect]
     Indication: SMOKING CESSATION THERAPY
     Dosage: 1 MG, 2X/DAY
     Route: 048
     Dates: start: 20110605
  3. CITALOPRAM [Concomitant]
  4. QVAR 40 [Concomitant]
  5. SEREVENT [Concomitant]
  6. DAPSONE [Concomitant]

REACTIONS (2)
  - ANXIETY [None]
  - MENSTRUATION DELAYED [None]
